FAERS Safety Report 7989351-1 (Version None)
Quarter: 2011Q4

REPORT INFORMATION
  Report Type: 
  Country: None (occurrence: None)
  Receive Date: 20111219
  Receipt Date: 20111207
  Transmission Date: 20120403
  Serious: Yes (Other)
  Sender: FDA-Public Use
  Company Number: PT-JNJFOC-20111112558

PATIENT
  Age: 37 Year
  Sex: Male

DRUGS (2)
  1. REMICADE [Suspect]
     Indication: ANKYLOSING SPONDYLITIS
     Route: 042
     Dates: start: 20110920
  2. REMICADE [Suspect]
     Route: 042
     Dates: start: 20100323

REACTIONS (3)
  - ANGIOEDEMA [None]
  - TYPE IV HYPERSENSITIVITY REACTION [None]
  - PERIORBITAL OEDEMA [None]
